FAERS Safety Report 25400955 (Version 2)
Quarter: 2025Q3

REPORT INFORMATION
  Report Type: Spontaneous
  Country: EU (occurrence: EU)
  Receive Date: 20250605
  Receipt Date: 20250701
  Transmission Date: 20251021
  Serious: Yes (Life-Threatening, Hospitalization, Other)
  Sender: AUROBINDO
  Company Number: EU-MSNLABS-2025MSNLIT01166

PATIENT
  Age: 68 Year
  Sex: Female
  Weight: 165 kg

DRUGS (9)
  1. ATORVASTATIN [Suspect]
     Active Substance: ATORVASTATIN
     Indication: Dyslipidaemia
     Dosage: 40 MILLIGRAM, ONCE A DAY
     Route: 048
  2. DEFLAZACORT [Suspect]
     Active Substance: DEFLAZACORT
     Indication: Product used for unknown indication
     Dosage: 12 MILLIGRAM, ONCE A DAY
     Route: 065
  3. HYDROXYCHLOROQUINE [Suspect]
     Active Substance: HYDROXYCHLOROQUINE
     Indication: Systemic lupus erythematosus
     Dosage: 300 MILLIGRAM, ONCE A DAY
     Route: 065
  4. LIDOCAINE [Suspect]
     Active Substance: LIDOCAINE
     Indication: Myasthenia gravis
     Route: 058
  5. LIDOCAINE [Suspect]
     Active Substance: LIDOCAINE
     Indication: Local anaesthesia
     Dosage: 80 MILLIGRAM, ONCE A DAY
     Route: 058
  6. ESOMEPRAZOLE [Concomitant]
     Active Substance: ESOMEPRAZOLE
     Indication: Product used for unknown indication
     Dosage: 20 MILLIGRAM, ONCE A DAY [20 MG/24 H]
     Route: 065
  7. ACENOCOUMAROL [Concomitant]
     Active Substance: ACENOCOUMAROL
     Indication: Product used for unknown indication
     Dosage: 7 MILLIGRAM, EVERY WEEK [TOTAL WEEKLY DOSE: 7 MG]
     Route: 065
  8. HYDROCHLOROTHIAZIDE\VALSARTAN [Concomitant]
     Active Substance: HYDROCHLOROTHIAZIDE\VALSARTAN
     Indication: Hypertension
     Dosage: UNK UNK, ONCE A DAY [80/12.5 MG/ 24 H]
     Route: 065
  9. BELIMUMAB [Concomitant]
     Active Substance: BELIMUMAB
     Indication: Systemic lupus erythematosus
     Dosage: 200 MILLIGRAM, EVERY WEEK
     Route: 058

REACTIONS (5)
  - Myasthenia gravis crisis [Recovered/Resolved]
  - Quadriplegia [Recovered/Resolved]
  - Acute respiratory failure [Recovered/Resolved]
  - Depressed level of consciousness [Recovered/Resolved]
  - Diplegia [Recovered/Resolved]
